FAERS Safety Report 20763509 (Version 1)
Quarter: 2022Q2

REPORT INFORMATION
  Report Type: Spontaneous
  Country: US (occurrence: US)
  Receive Date: 20220428
  Receipt Date: 20220428
  Transmission Date: 20220721
  Serious: Yes (Death, Other)
  Sender: FDA-Public Use
  Company Number: US-TEVA-2022-US-2030094

PATIENT
  Age: 64 Year
  Sex: Male

DRUGS (18)
  1. DEXAMETHASONE [Suspect]
     Active Substance: DEXAMETHASONE
     Indication: Post transplant lymphoproliferative disorder
     Route: 065
  2. DEXAMETHASONE [Suspect]
     Active Substance: DEXAMETHASONE
     Dosage: ONE CYCLE OF R-DHAP THERAPY
     Route: 065
  3. DEXAMETHASONE [Suspect]
     Active Substance: DEXAMETHASONE
     Dosage: ONE CYCLE OF R-HYPER-CVAD THERAPY
     Route: 065
  4. DOXORUBICIN [Suspect]
     Active Substance: DOXORUBICIN
     Indication: Post transplant lymphoproliferative disorder
     Dosage: ONE CYCLE OF R-CHOP THERAPY
     Route: 065
  5. DOXORUBICIN [Suspect]
     Active Substance: DOXORUBICIN
     Dosage: ONE CYCLE OF R-HYPER-CVAD THERAPY
     Route: 065
  6. VINCRISTINE [Suspect]
     Active Substance: VINCRISTINE
     Indication: Post transplant lymphoproliferative disorder
     Dosage: ONE CYCLE OF R-CHOP THERAPY
     Route: 065
  7. VINCRISTINE [Suspect]
     Active Substance: VINCRISTINE
     Dosage: ONE CYCLE OF R-HYPER-CVAD THERAPY
     Route: 065
  8. PREDNISOLONE [Suspect]
     Active Substance: PREDNISOLONE
     Indication: Post transplant lymphoproliferative disorder
     Dosage: ONE CYCLE OF R-CHOP THERAPY
     Route: 065
  9. RITUXIMAB [Suspect]
     Active Substance: RITUXIMAB
     Indication: Post transplant lymphoproliferative disorder
     Dosage: ONE CYCLE OF R-CHOP THERAPY
     Route: 065
  10. RITUXIMAB [Suspect]
     Active Substance: RITUXIMAB
     Dosage: ONE CYCLE OF R-DHAP THERAPY
     Route: 065
  11. RITUXIMAB [Suspect]
     Active Substance: RITUXIMAB
     Dosage: ONE CYCLE OF R-HYPER-CVAD THERAPY
     Route: 065
  12. RITUXIMAB [Suspect]
     Active Substance: RITUXIMAB
     Dosage: EIGHT CYCLES OF RITUXIMAB
     Route: 065
  13. CYCLOPHOSPHAMIDE [Suspect]
     Active Substance: CYCLOPHOSPHAMIDE
     Indication: Post transplant lymphoproliferative disorder
     Dosage: ONE CYCLE OF R-CHOP THERAPY
     Route: 065
  14. CYCLOPHOSPHAMIDE [Suspect]
     Active Substance: CYCLOPHOSPHAMIDE
     Dosage: ONE CYCLE OF R-HYPER-CVAD THERAPY
     Route: 065
  15. CYTARABINE [Concomitant]
     Active Substance: CYTARABINE
     Indication: Post transplant lymphoproliferative disorder
     Dosage: THE PATIENT RECEIVED ONE CYCLE OF R-DHAP THERAPY
     Route: 065
  16. CISPLATIN [Concomitant]
     Active Substance: CISPLATIN
     Indication: Post transplant lymphoproliferative disorder
     Dosage: THE PATIENT RECEIVED ONE CYCLE OF R-DHAP THERAPY
     Route: 065
  17. METHOTREXATE [Concomitant]
     Active Substance: METHOTREXATE
     Indication: Post transplant lymphoproliferative disorder
     Dosage: THE PATIENT RECEIVED EIGHT CYCLES OF HIGH DOSE METHOTREXATE
     Route: 065
  18. EVEROLIMUS [Concomitant]
     Active Substance: EVEROLIMUS
     Indication: Immunosuppressant drug therapy
     Route: 065

REACTIONS (2)
  - Toxicity to various agents [Fatal]
  - Renal impairment [Unknown]
